FAERS Safety Report 13267102 (Version 1)
Quarter: 2017Q1

REPORT INFORMATION
  Report Type: Spontaneous
  Country: US (occurrence: US)
  Receive Date: 20170223
  Receipt Date: 20170223
  Transmission Date: 20170428
  Serious: No
  Sender: FDA-Public Use
  Company Number: None

PATIENT
  Age: 50 Year
  Sex: Female

DRUGS (1)
  1. AMOXICILLIN AND CLAV K [Suspect]
     Active Substance: AMOXICILLIN\CLAVULANATE POTASSIUM
     Indication: INFECTION
     Route: 048
     Dates: start: 20170222, end: 20170222

REACTIONS (3)
  - Cognitive disorder [None]
  - Euphoric mood [None]
  - Thinking abnormal [None]

NARRATIVE: CASE EVENT DATE: 20170222
